FAERS Safety Report 22519797 (Version 1)
Quarter: 2023Q2

REPORT INFORMATION
  Report Type: Spontaneous
  Country: GB (occurrence: GB)
  Receive Date: 20230605
  Receipt Date: 20230605
  Transmission Date: 20230722
  Serious: Yes (Other)
  Sender: FDA-Public Use
  Company Number: GB-MHRA-MED-202305252257377400-ZPCKN

PATIENT
  Age: 15 Year
  Sex: Female

DRUGS (1)
  1. TRIMETHOPRIM [Suspect]
     Active Substance: TRIMETHOPRIM
     Indication: Infection
     Dosage: 400 MILLIGRAM DAILY;  (21ST, 22ND, 23RD MAY 2023); ;
     Route: 065
     Dates: start: 20230521, end: 20230524

REACTIONS (5)
  - Ocular hyperaemia [Not Recovered/Not Resolved]
  - Oropharyngeal pain [Recovered/Resolved]
  - Oral mucosal roughening [Recovered/Resolved]
  - Somnolence [Recovered/Resolved]
  - Lymphadenopathy [Recovered/Resolved]

NARRATIVE: CASE EVENT DATE: 20230521
